FAERS Safety Report 6468689-3 (Version None)
Quarter: 2009Q4

REPORT INFORMATION
  Report Type: 
  Country: None (occurrence: None)
  Receive Date: 20091203
  Receipt Date: 20091125
  Transmission Date: 20100525
  Serious: Yes (Hospitalization)
  Sender: FDA-Public Use
  Company Number: JP-BAYER-200914150BYL

PATIENT
  Age: 85 Year
  Sex: Male
  Weight: 56 kg

DRUGS (11)
  1. NEXAVAR [Suspect]
     Indication: HEPATIC NEOPLASM MALIGNANT
     Dosage: UNIT DOSE: 200 MG
     Route: 048
     Dates: start: 20091026, end: 20091104
  2. NEXAVAR [Suspect]
     Dosage: TOTAL DAILY DOSE: 800 MG  UNIT DOSE: 200 MG
     Route: 048
     Dates: start: 20091020, end: 20091026
  3. EXCELASE [Concomitant]
     Dosage: BEFORE NEXAVAR ADMINISTRATION
     Route: 048
  4. GLAKAY [Concomitant]
     Dosage: BEFORE NEXAVAR ADMINISTRATION
     Route: 048
  5. LIVACT [Concomitant]
     Dosage: BEFORE NEXAVAR ADMINISTRATION
     Route: 048
  6. LASIX [Concomitant]
     Dosage: BEFORE NEXAVAR ADMINISTRATION
     Route: 048
  7. ZYLORIC [Concomitant]
     Dosage: BEFORE NEXAVAR ADMINISTRATION
     Route: 048
  8. URSO 250 [Concomitant]
     Dosage: BEFORE NEXAVAR ADMINISTRATION
     Route: 048
  9. ACINON [Concomitant]
     Dosage: BEFORE NEXAVAR ADMINISTRATION
     Route: 048
  10. UREPEARL [Concomitant]
     Indication: PROPHYLAXIS
     Dosage: BEFORE NEXAVAR ADMINISTRATION
     Route: 061
  11. NEO-MINOPHAGEN C [Concomitant]
     Dosage: TOTAL DAILY DOSE: 60 ML
     Route: 042

REACTIONS (4)
  - BLOOD AMYLASE INCREASED [None]
  - DIARRHOEA [None]
  - HEPATIC ENCEPHALOPATHY [None]
  - PLATELET COUNT DECREASED [None]
